FAERS Safety Report 9552327 (Version 1)
Quarter: 2013Q3

REPORT INFORMATION
  Report Type: Spontaneous
  Country: BR (occurrence: BR)
  Receive Date: 20130925
  Receipt Date: 20130925
  Transmission Date: 20140515
  Serious: Yes (Hospitalization)
  Sender: FDA-Public Use
  Company Number: BR-ASTRAZENECA-2013SE69785

PATIENT
  Age: 741 Month
  Sex: Male
  Weight: 105 kg

DRUGS (5)
  1. ATACAND [Suspect]
     Route: 048
     Dates: start: 2004, end: 201304
  2. SPIRONOLACTONE [Concomitant]
     Dates: start: 2004
  3. CARVEDILOL [Concomitant]
     Dates: start: 2004, end: 201304
  4. ASA [Concomitant]
     Dates: start: 2004
  5. CLOPIDOGREL BISUFATE [Concomitant]
     Dates: start: 2004, end: 201304

REACTIONS (1)
  - Coronary artery occlusion [Recovered/Resolved]
